FAERS Safety Report 15326605 (Version 2)
Quarter: 2018Q3

REPORT INFORMATION
  Report Type: Report from Study
  Country: US (occurrence: US)
  Receive Date: 20180828
  Receipt Date: 20180905
  Transmission Date: 20181010
  Serious: Yes (Hospitalization, Other)
  Sender: FDA-Public Use
  Company Number: US-GILEAD-2018-0359643

PATIENT
  Age: 72 Year
  Sex: Male

DRUGS (2)
  1. IDELALISIB [Suspect]
     Active Substance: IDELALISIB
     Indication: B-CELL LYMPHOMA
     Dosage: 150 MG, BID
     Route: 065
     Dates: start: 20160620, end: 20180815
  2. IDELALISIB [Suspect]
     Active Substance: IDELALISIB
     Indication: LEUKAEMIA
     Dosage: 150 UNK, UNK
     Route: 048
     Dates: start: 201808

REACTIONS (4)
  - Device related infection [Recovering/Resolving]
  - Drug dose omission [Recovered/Resolved]
  - Oesophageal carcinoma [Not Recovered/Not Resolved]
  - Gastrointestinal tube insertion [Unknown]

NARRATIVE: CASE EVENT DATE: 201808
